FAERS Safety Report 8200616-0 (Version None)
Quarter: 2012Q1

REPORT INFORMATION
  Report Type: 
  Country: None (occurrence: None)
  Receive Date: 20120312
  Receipt Date: 20120307
  Transmission Date: 20120608
  Serious: Yes (Death)
  Sender: FDA-Public Use
  Company Number: US-BRISTOL-MYERS SQUIBB COMPANY-16331886

PATIENT
  Age: 45 Year
  Sex: Male

DRUGS (6)
  1. ALBUTEROL [Concomitant]
  2. PRINIVIL [Concomitant]
  3. YERVOY [Suspect]
     Indication: MALIGNANT MELANOMA
     Route: 042
     Dates: start: 20111103, end: 20111202
  4. DECADRON [Concomitant]
  5. MICRO-K [Concomitant]
  6. LORTAB [Concomitant]

REACTIONS (1)
  - NEOPLASM MALIGNANT [None]
